FAERS Safety Report 25277716 (Version 1)
Quarter: 2025Q2

REPORT INFORMATION
  Report Type: Spontaneous
  Country: DE (occurrence: DE)
  Receive Date: 20250507
  Receipt Date: 20250507
  Transmission Date: 20250717
  Serious: Yes (Other)
  Sender: DAIICHI
  Company Number: DE-DSJP-DS-2025-139411-DE

PATIENT
  Age: 78 Year
  Sex: Female

DRUGS (1)
  1. EDOXABAN TOSYLATE [Suspect]
     Active Substance: EDOXABAN TOSYLATE
     Indication: Atrial fibrillation
     Dosage: 1 DOSAGE FORM, QD (ONE TABLET, QD)
     Route: 065
     Dates: start: 202411

REACTIONS (3)
  - Dizziness [Not Recovered/Not Resolved]
  - Lenticular opacities [Unknown]
  - Intraocular lens implant [Unknown]

NARRATIVE: CASE EVENT DATE: 20250401
